FAERS Safety Report 7132743-3 (Version None)
Quarter: 2010Q4

REPORT INFORMATION
  Report Type: 
  Country: None (occurrence: None)
  Receive Date: 20101129
  Receipt Date: 20101129
  Transmission Date: 20110411
  Serious: No
  Sender: FDA-Public Use
  Company Number: None

PATIENT
  Age: 53 Year
  Sex: Female
  Weight: 90.7194 kg

DRUGS (1)
  1. VENLAFAXINE HCL EXTENDED-RELEASE [Suspect]
     Indication: ANXIETY DISORDER
     Dosage: 150MG ONCE DAILY PO
     Route: 048
     Dates: start: 20101102, end: 20101114

REACTIONS (2)
  - ANXIETY [None]
  - PRODUCT SUBSTITUTION ISSUE [None]
